FAERS Safety Report 6087406-2 (Version None)
Quarter: 2009Q1

REPORT INFORMATION
  Report Type: 
  Country: None (occurrence: None)
  Receive Date: 20090219
  Receipt Date: 20090219
  Transmission Date: 20090719
  Serious: No
  Sender: FDA-Public Use
  Company Number: None

PATIENT
  Age: 73 Year
  Sex: Female
  Weight: 65.7716 kg

DRUGS (1)
  1. ACTONEL [Suspect]
     Dosage: 150 MG ONCE A MO.
     Dates: start: 20090101

REACTIONS (5)
  - ABDOMINAL PAIN UPPER [None]
  - BACK PAIN [None]
  - DIARRHOEA [None]
  - PAIN [None]
  - VISION BLURRED [None]
